FAERS Safety Report 12640249 (Version 1)
Quarter: 2016Q3

REPORT INFORMATION
  Report Type: Spontaneous
  Country: TR (occurrence: TR)
  Receive Date: 20160810
  Receipt Date: 20160810
  Transmission Date: 20161109
  Serious: Yes (Other)
  Sender: FDA-Public Use
  Company Number: TR-ACTAVIS-2016-16763

PATIENT
  Age: 46 Year
  Sex: Female

DRUGS (2)
  1. CISPLATIN (UNKNOWN) [Suspect]
     Active Substance: CISPLATIN
     Indication: UNDIFFERENTIATED SARCOMA
     Dosage: UNK UNK, CYCLICAL, 1 CYCLE
     Route: 065
  2. DOXORUBICIN (UNKNOWN) [Suspect]
     Active Substance: DOXORUBICIN
     Indication: UNDIFFERENTIATED SARCOMA
     Dosage: UNK UNK, CYCLICAL,1 CYCLE
     Route: 065

REACTIONS (1)
  - Treatment failure [Unknown]
